FAERS Safety Report 21775370 (Version 1)
Quarter: 2022Q4

REPORT INFORMATION
  Report Type: Spontaneous
  Country: US (occurrence: US)
  Receive Date: 20221225
  Receipt Date: 20221225
  Transmission Date: 20230113
  Serious: Yes (Hospitalization)
  Sender: FDA-Public Use
  Company Number: US-AVEO ONCOLOGY-2022-AVEO-US000602

PATIENT

DRUGS (8)
  1. FOTIVDA [Suspect]
     Active Substance: TIVOZANIB HYDROCHLORIDE
     Indication: Renal cell carcinoma
     Dosage: 0.89 MG, DAILY FOR 21 DAYS WITH 7 DAYS OFF (28-DAY CYCLE)
     Route: 048
     Dates: start: 20221008, end: 202212
  2. MORPHINE [Concomitant]
     Active Substance: MORPHINE
  3. GABAPENTIN [Concomitant]
     Active Substance: GABAPENTIN
  4. VITAMINS [Concomitant]
     Active Substance: VITAMINS
  5. PREDNISONE [Concomitant]
     Active Substance: PREDNISONE
  6. OXYCODONE [Concomitant]
     Active Substance: OXYCODONE
  7. BUTRANS [Concomitant]
     Active Substance: BUPRENORPHINE
     Route: 062
  8. METHADONE [Concomitant]
     Active Substance: METHADONE HYDROCHLORIDE

REACTIONS (2)
  - Ill-defined disorder [Unknown]
  - Pain [Unknown]
